FAERS Safety Report 10210251 (Version 1)
Quarter: 2014Q2

REPORT INFORMATION
  Report Type: Spontaneous
  Country: US (occurrence: None)
  Receive Date: 20140528
  Receipt Date: 20140528
  Transmission Date: 20141212
  Serious: Yes (Other)
  Sender: FDA-Public Use
  Company Number: 2014AP003088

PATIENT
  Age: 36 Year
  Sex: Female

DRUGS (4)
  1. CARBAMAZEPINE (CARBAMAZEPINE) UNKNOWN [Suspect]
     Indication: JUVENILE MYOCLONIC EPILEPSY
  2. LEVETIRACETAM (LEVETIRACETAM) TABLET, 3000MG [Suspect]
     Indication: JUVENILE MYOCLONIC EPILEPSY
  3. TOPIRAMATE (TOPIRAMATE) UNKNOWN, 100MG [Suspect]
     Indication: JUVENILE MYOCLONIC EPILEPSY
  4. VALPROIC ACID (VALPROIC ACID) [Suspect]
     Indication: JUVENILE MYOCLONIC EPILEPSY

REACTIONS (3)
  - Generalised tonic-clonic seizure [None]
  - Somnolence [None]
  - Drug ineffective [None]
